FAERS Safety Report 25498781 (Version 1)
Quarter: 2025Q3

REPORT INFORMATION
  Report Type: Spontaneous
  Country: JP (occurrence: JP)
  Receive Date: 20250701
  Receipt Date: 20250701
  Transmission Date: 20251021
  Serious: Yes (Other)
  Sender: ROCHE
  Company Number: JP-CHUGAI-2025020575

PATIENT
  Age: 2 Decade
  Sex: Female

DRUGS (2)
  1. CELLCEPT [Suspect]
     Active Substance: MYCOPHENOLATE MOFETIL
     Indication: Focal segmental glomerulosclerosis
     Route: 048
  2. CYCLOSPORINE [Concomitant]
     Active Substance: CYCLOSPORINE
     Indication: Focal segmental glomerulosclerosis
     Route: 065

REACTIONS (4)
  - Chronic tonsillitis [Recovering/Resolving]
  - Hypoalbuminaemia [Recovering/Resolving]
  - Hypogammaglobulinaemia [Unknown]
  - Off label use [Unknown]
